FAERS Safety Report 5652988-9 (Version None)
Quarter: 2008Q1

REPORT INFORMATION
  Report Type: 
  Country: None (occurrence: None)
  Receive Date: 20080306
  Receipt Date: 20080226
  Transmission Date: 20080703
  Serious: Yes (Hospitalization, Other)
  Sender: FDA-Public Use
  Company Number: PHFR2007GB03590

PATIENT
  Age: 28 Year
  Sex: Male

DRUGS (8)
  1. CLOZARIL [Suspect]
     Indication: SCHIZOPHRENIA
     Dosage: 25 MG/DAY
     Route: 048
     Dates: start: 20071207, end: 20071209
  2. CLOZARIL [Suspect]
     Dosage: 400MG DAILY
     Route: 048
     Dates: start: 20080101, end: 20080208
  3. RISPERIDONE [Interacting]
     Indication: SCHIZOPHRENIA
     Dosage: 50 MG, QW2
     Route: 030
     Dates: start: 20070101, end: 20071121
  4. HERBAL PREPARATION [Suspect]
     Route: 048
     Dates: start: 20070101, end: 20071209
  5. VALPROATE SODIUM [Suspect]
     Dosage: 1G DAILY
     Route: 048
  6. OLANZAPINE [Concomitant]
     Route: 065
  7. LITHIUM CARBONATE [Concomitant]
     Route: 065
  8. AMISULPRIDE [Concomitant]
     Route: 065

REACTIONS (4)
  - DRUG INTERACTION [None]
  - GRAND MAL CONVULSION [None]
  - LEUKOPENIA [None]
  - NEUTROPHIL COUNT DECREASED [None]
